FAERS Safety Report 7877166-4 (Version None)
Quarter: 2011Q4

REPORT INFORMATION
  Report Type: 
  Country: None (occurrence: None)
  Receive Date: 20111031
  Receipt Date: 20111021
  Transmission Date: 20120403
  Serious: Yes (Hospitalization)
  Sender: FDA-Public Use
  Company Number: US-BAYER-2011-104535

PATIENT
  Age: 30 Year
  Sex: Female
  Weight: 51.701 kg

DRUGS (4)
  1. YAZ [Suspect]
     Indication: ACNE
     Dosage: UNK
     Dates: start: 20090101, end: 20090701
  2. DROSPIRENONE AND ETHINYL ESTRADIOL [Suspect]
     Indication: ACNE
  3. YAZ [Suspect]
     Indication: CONTRACEPTION
     Dosage: UNK
     Dates: start: 20080101, end: 20080901
  4. DROSPIRENONE AND ETHINYL ESTRADIOL [Suspect]
     Indication: CONTRACEPTION
     Dosage: UNK
     Dates: start: 20080901, end: 20090101

REACTIONS (6)
  - CHOLECYSTITIS CHRONIC [None]
  - DISCOMFORT [None]
  - DEFAECATION URGENCY [None]
  - PAIN [None]
  - SCAR [None]
  - CHOLECYSTECTOMY [None]
